FAERS Safety Report 10032865 (Version 3)
Quarter: 2014Q4

REPORT INFORMATION
  Report Type: Spontaneous
  Country: FR (occurrence: FR)
  Receive Date: 20140324
  Receipt Date: 20141029
  Transmission Date: 20150528
  Serious: Yes (Death, Life-Threatening, Hospitalization)
  Sender: FDA-Public Use
  Company Number: FR-ASTRAZENECA-2014SE19954

PATIENT
  Age: 16312 Day
  Sex: Male

DRUGS (5)
  1. DONORMYL [Suspect]
     Active Substance: DOXYLAMINE SUCCINATE
     Route: 048
  2. MELATONINE [Suspect]
     Active Substance: MELATONIN
     Route: 048
  3. XANAX [Suspect]
     Active Substance: ALPRAZOLAM
     Route: 048
  4. XEROQUEL [Suspect]
     Active Substance: QUETIAPINE FUMARATE
     Route: 048
  5. ZOPICLONE [Suspect]
     Active Substance: ZOPICLONE
     Route: 048

REACTIONS (7)
  - Muscle rigidity [Recovered/Resolved with Sequelae]
  - Neuromyopathy [Fatal]
  - Toxicity to various agents [Unknown]
  - Neuroleptic malignant syndrome [Recovered/Resolved with Sequelae]
  - Altered state of consciousness [Not Recovered/Not Resolved]
  - Hyperthermia malignant [Recovered/Resolved with Sequelae]
  - Rhabdomyolysis [Recovered/Resolved with Sequelae]

NARRATIVE: CASE EVENT DATE: 20140110
